FAERS Safety Report 10073288 (Version 3)
Quarter: 2014Q2

REPORT INFORMATION
  Report Type: Spontaneous
  Country: FR (occurrence: FR)
  Receive Date: 20140411
  Receipt Date: 20140506
  Transmission Date: 20141212
  Serious: Yes (Other)
  Sender: FDA-Public Use
  Company Number: FR-GLAXOSMITHKLINE-B0983015A

PATIENT
  Age: 5 Year
  Sex: Male
  Weight: 16 kg

DRUGS (1)
  1. SERETIDE [Suspect]
     Indication: ASTHMA
     Dosage: 50MCG TWICE PER DAY
     Route: 055
     Dates: start: 201402, end: 201403

REACTIONS (5)
  - Choking [Recovered/Resolved]
  - Suffocation feeling [Recovered/Resolved]
  - Nausea [Recovered/Resolved]
  - Cough [Recovered/Resolved]
  - Product quality issue [Unknown]
